FAERS Safety Report 18749291 (Version 5)
Quarter: 2021Q1

REPORT INFORMATION
  Report Type: Report from Study
  Country: US (occurrence: US)
  Receive Date: 20210116
  Receipt Date: 20210312
  Transmission Date: 20210419
  Serious: No
  Sender: FDA-Public Use
  Company Number: NVSC2021US008444

PATIENT
  Age: 57 Year
  Sex: Female

DRUGS (4)
  1. MAYZENT [Suspect]
     Active Substance: SIPONIMOD
     Indication: RELAPSING-REMITTING MULTIPLE SCLEROSIS
  2. MAYZENT [Suspect]
     Active Substance: SIPONIMOD
     Indication: RELAPSING MULTIPLE SCLEROSIS
  3. MAYZENT [Suspect]
     Active Substance: SIPONIMOD
     Indication: SECONDARY PROGRESSIVE MULTIPLE SCLEROSIS
  4. MAYZENT [Suspect]
     Active Substance: SIPONIMOD
     Indication: CLINICALLY ISOLATED SYNDROME
     Dosage: 0.25 MG, QD
     Route: 048
     Dates: start: 20210113

REACTIONS (12)
  - Fall [Unknown]
  - Arthralgia [Unknown]
  - Hypoaesthesia [Unknown]
  - Musculoskeletal stiffness [Unknown]
  - Pain in jaw [Unknown]
  - Aphasia [Unknown]
  - Ulnar tunnel syndrome [Unknown]
  - Feeling abnormal [Unknown]
  - Pain [Unknown]
  - Neck pain [Unknown]
  - Memory impairment [Unknown]
  - Contusion [Unknown]

NARRATIVE: CASE EVENT DATE: 20210113
